FAERS Safety Report 23160422 (Version 1)
Quarter: 2023Q4

REPORT INFORMATION
  Report Type: Spontaneous
  Country: JP (occurrence: JP)
  Receive Date: 20231108
  Receipt Date: 20231108
  Transmission Date: 20240110
  Serious: Yes (Hospitalization, Other)
  Sender: FDA-Public Use
  Company Number: JP-MPKK-JPN202301141_P_1

PATIENT
  Age: 9 Decade
  Sex: Male

DRUGS (2)
  1. NORSPAN [Suspect]
     Active Substance: BUPRENORPHINE
     Indication: Pain
     Dosage: 2.5 MCG/H
     Route: 062
  2. ASPIRIN [Concomitant]
     Active Substance: ASPIRIN
     Indication: Product used for unknown indication
     Dosage: PERORAL MEDICINE
     Route: 048

REACTIONS (2)
  - Renal failure [Unknown]
  - Wrong technique in product usage process [Unknown]

NARRATIVE: CASE EVENT DATE: 20231031
